FAERS Safety Report 17705900 (Version 7)
Quarter: 2022Q3

REPORT INFORMATION
  Report Type: Spontaneous
  Country: EC (occurrence: EC)
  Receive Date: 20200424
  Receipt Date: 20220818
  Transmission Date: 20221026
  Serious: Yes (Hospitalization, Other)
  Sender: FDA-Public Use
  Company Number: EC-BIOMARINAP-EC-2020-129764

PATIENT

DRUGS (4)
  1. LARONIDASE [Suspect]
     Active Substance: LARONIDASE
     Indication: Mucopolysaccharidosis I
     Dosage: 6 DF, QW; UNITS 2500 U
     Route: 041
     Dates: start: 20100712
  2. LARONIDASE [Suspect]
     Active Substance: LARONIDASE
     Dosage: 5 DF, QW; UNITS 2500 U
     Route: 041
     Dates: start: 20190911, end: 20191030
  3. LARONIDASE [Suspect]
     Active Substance: LARONIDASE
     Dosage: 5 DF, QW; UNITS 2500 U
     Route: 042
     Dates: start: 20191120, end: 20200218
  4. LARONIDASE [Suspect]
     Active Substance: LARONIDASE
     Dosage: 5 DF, QW
     Route: 041
     Dates: start: 20200311

REACTIONS (14)
  - Pyelonephritis [Recovering/Resolving]
  - Dysuria [Recovered/Resolved]
  - COVID-19 [Recovered/Resolved]
  - Dyspnoea [Recovering/Resolving]
  - Influenza [Recovering/Resolving]
  - Nasal congestion [Recovering/Resolving]
  - Malaise [Recovering/Resolving]
  - Pharyngitis [Recovering/Resolving]
  - Nasal congestion [Recovering/Resolving]
  - Somnolence [Recovering/Resolving]
  - Malaise [Recovering/Resolving]
  - Incontinence [Not Recovered/Not Resolved]
  - Influenza [Recovered/Resolved]
  - Oropharyngeal pain [Recovering/Resolving]

NARRATIVE: CASE EVENT DATE: 20190904
